FAERS Safety Report 14486735 (Version 3)
Quarter: 2022Q3

REPORT INFORMATION
  Report Type: Report from Study
  Country: US (occurrence: US)
  Receive Date: 20180205
  Receipt Date: 20220909
  Transmission Date: 20221027
  Serious: Yes (Hospitalization, Other)
  Sender: FDA-Public Use
  Company Number: US-TAKEDA-2018TUS002612

PATIENT
  Age: 34 Year
  Sex: Female
  Weight: 97.98 kg

DRUGS (15)
  1. VEDOLIZUMAB [Suspect]
     Active Substance: VEDOLIZUMAB
     Indication: Colitis ulcerative
     Dosage: 300 MILLIGRAM
     Route: 065
     Dates: start: 20170530
  2. ASPIRIN [Concomitant]
     Active Substance: ASPIRIN
     Indication: Placental disorder
     Dosage: 81 MILLIGRAM, QD
     Route: 048
     Dates: start: 20171130
  3. BENADRYL [Concomitant]
     Active Substance: DIPHENHYDRAMINE HYDROCHLORIDE
     Indication: Hypersensitivity
     Dosage: UNK
     Route: 048
     Dates: start: 20170720
  4. BENADRYL [Concomitant]
     Active Substance: DIPHENHYDRAMINE HYDROCHLORIDE
     Indication: Pruritus
  5. CAFFEINE [Concomitant]
     Active Substance: CAFFEINE
     Dosage: UNK
     Route: 048
     Dates: start: 20170720
  6. DOCONEXENT [Concomitant]
     Active Substance: DOCONEXENT
     Dosage: UNK UNK, QD
     Route: 048
     Dates: start: 20170801
  7. DULERA [Concomitant]
     Active Substance: FORMOTEROL FUMARATE DIHYDRATE\MOMETASONE FUROATE
     Indication: Asthma
     Dosage: UNK
     Dates: start: 20170720
  8. PROTONIX [Concomitant]
     Active Substance: PANTOPRAZOLE SODIUM
     Indication: Gastrooesophageal reflux disease
     Dosage: 40 MILLIGRAM, QD
     Route: 048
     Dates: start: 20170720
  9. PROVENTIL [Concomitant]
     Active Substance: ALBUTEROL
     Indication: Asthma
     Dosage: UNK
     Dates: start: 20170720
  10. SINGULAIR [Concomitant]
     Active Substance: MONTELUKAST SODIUM
     Indication: Asthma
     Dosage: 10 MILLIGRAM, QD
     Route: 048
     Dates: start: 20170720
  11. TYLENOL [Concomitant]
     Active Substance: ACETAMINOPHEN
     Indication: Toothache
     Dosage: UNK
     Route: 048
     Dates: start: 20170720
  12. TYLENOL [Concomitant]
     Active Substance: ACETAMINOPHEN
     Indication: Biliary colic
  13. CLINDAMYCIN [Concomitant]
     Active Substance: CLINDAMYCIN
     Indication: Tooth extraction
     Dosage: UNK
     Route: 048
  14. INFLUENZA VIRUS VACCINE [Concomitant]
     Active Substance: INFLUENZA VIRUS VACCINE
     Dosage: UNK
     Route: 030
  15. Mucinex expectorant [Concomitant]
     Indication: Sinusitis
     Dosage: UNK
     Route: 048

REACTIONS (3)
  - Cholelithiasis [Recovered/Resolved]
  - Pancreatitis [Unknown]
  - Pregnancy [Unknown]

NARRATIVE: CASE EVENT DATE: 20170720
